FAERS Safety Report 9526740 (Version 2)
Quarter: 2013Q4

REPORT INFORMATION
  Report Type: Spontaneous
  Country: US (occurrence: US)
  Receive Date: 20130916
  Receipt Date: 20131008
  Transmission Date: 20140711
  Serious: Yes (Hospitalization, Other)
  Sender: FDA-Public Use
  Company Number: US-COVIDIEN/TYCO HEALTHCARE/MALLINCKRODT-T201304340

PATIENT
  Age: 66 Year
  Sex: Female
  Weight: 62.13 kg

DRUGS (4)
  1. FENTANYL TRANSDERMAL SYSTEM [Suspect]
     Indication: BACK PAIN
     Dosage: 100 UG/HR, Q 72 HOURS
     Route: 062
     Dates: start: 20130803, end: 20130902
  2. PRAVASTATIN [Concomitant]
     Indication: BLOOD CHOLESTEROL INCREASED
     Dosage: 40 MG, QD
     Route: 048
  3. TRAZODONE [Concomitant]
     Dosage: 75 MG AT BEDTIME
     Route: 048
  4. VICODIN [Concomitant]
     Indication: BREAKTHROUGH PAIN
     Dosage: 5/500MG, TID
     Route: 048
     Dates: start: 2007

REACTIONS (7)
  - Depression [Unknown]
  - Delirium tremens [Recovered/Resolved]
  - Insomnia [Recovered/Resolved]
  - Panic reaction [Recovered/Resolved]
  - Hyperhidrosis [Recovered/Resolved]
  - Abnormal behaviour [Recovered/Resolved]
  - Product adhesion issue [Recovered/Resolved]
